FAERS Safety Report 7959378-4 (Version None)
Quarter: 2011Q4

REPORT INFORMATION
  Report Type: 
  Country: None (occurrence: None)
  Receive Date: 20111206
  Receipt Date: 20111201
  Transmission Date: 20120403
  Serious: Yes (Hospitalization, Other)
  Sender: FDA-Public Use
  Company Number: FR-PFIZER INC-2006075061

PATIENT
  Age: 14 Year
  Sex: Male
  Weight: 54 kg

DRUGS (6)
  1. SOMATROPIN [Suspect]
     Dosage: 2 MG, 1X/DAY
     Route: 058
     Dates: start: 20060516
  2. PREDNISONE TAB [Concomitant]
     Indication: JUVENILE ARTHRITIS
     Dosage: 25 MG, ALTERNATE DAY
     Route: 048
     Dates: start: 20060407, end: 20060502
  3. PREDNISONE TAB [Concomitant]
     Dosage: 80MG DAILY
     Route: 048
     Dates: start: 20060503, end: 20060523
  4. NEORAL [Concomitant]
     Dosage: 25 UNK, UNK
     Route: 048
     Dates: start: 20030605
  5. SOMATROPIN [Suspect]
     Indication: BODY HEIGHT BELOW NORMAL
     Dosage: 3.3 MG, 1X/DAY
     Route: 058
     Dates: start: 20021119
  6. PREDNISONE TAB [Concomitant]
     Dosage: 80 MG, ALTERNATE DAY
     Dates: start: 20060524, end: 20060605

REACTIONS (3)
  - HYPERTENSION [None]
  - DIABETES MELLITUS [None]
  - NEPHROTIC SYNDROME [None]
